FAERS Safety Report 9171114 (Version 1)
Quarter: 2013Q1

REPORT INFORMATION
  Report Type: Report from Study
  Country: CA (occurrence: CA)
  Receive Date: 20130319
  Receipt Date: 20130319
  Transmission Date: 20140127
  Serious: Yes (Hospitalization)
  Sender: FDA-Public Use
  Company Number: CA-JNJFOC-20130303361

PATIENT
  Sex: Female
  Weight: 100 kg

DRUGS (6)
  1. REMICADE [Suspect]
     Indication: RHEUMATOID ARTHRITIS
     Route: 042
     Dates: start: 2009
  2. REMICADE [Suspect]
     Indication: RHEUMATOID ARTHRITIS
     Route: 042
     Dates: start: 201202
  3. REMICADE [Suspect]
     Indication: CROHN^S DISEASE
     Route: 042
     Dates: start: 201202
  4. REMICADE [Suspect]
     Indication: CROHN^S DISEASE
     Route: 042
     Dates: start: 2009
  5. METHOTREXATE [Concomitant]
     Route: 065
  6. PREDNISONE [Concomitant]
     Dosage: TAPPER OF BY 5 MG EACH WEEK UNTIL FINISHED
     Route: 065

REACTIONS (3)
  - Lung disorder [Unknown]
  - Abasia [Recovering/Resolving]
  - Drug effect decreased [Unknown]
